FAERS Safety Report 21994808 (Version 1)
Quarter: 2023Q1

REPORT INFORMATION
  Report Type: Spontaneous
  Country: TW (occurrence: TW)
  Receive Date: 20230215
  Receipt Date: 20230215
  Transmission Date: 20230417
  Serious: Yes (Hospitalization)
  Sender: FDA-Public Use
  Company Number: TW-MYLANLABS-2023M1017080

PATIENT
  Age: 41 Year
  Sex: Female

DRUGS (6)
  1. CLOZAPINE [Interacting]
     Active Substance: CLOZAPINE
     Indication: Schizophrenia
     Dosage: 200 MILLIGRAM, QD
     Route: 065
  2. CLOZAPINE [Interacting]
     Active Substance: CLOZAPINE
     Dosage: 175 MILLIGRAM; (DECREASED TO 175 MG)
     Route: 065
     Dates: start: 20220602
  3. PAXLOVID [Interacting]
     Active Substance: NIRMATRELVIR\RITONAVIR
     Indication: COVID-19
     Dosage: UNK UNK, BID, 150MG/100MG
     Route: 065
     Dates: start: 20220602, end: 20220607
  4. FLUVOXAMINE [Interacting]
     Active Substance: FLUVOXAMINE
     Indication: Schizophrenia
     Dosage: 1000 MILLIGRAM
     Route: 065
  5. VALPROIC ACID [Suspect]
     Active Substance: VALPROIC ACID
     Indication: Schizophrenia
     Dosage: 1000 MILLIGRAM
     Route: 065
  6. VALPROIC ACID [Suspect]
     Active Substance: VALPROIC ACID
     Dosage: 500 MILLIGRAM
     Route: 065

REACTIONS (2)
  - Neutropenia [Recovered/Resolved]
  - Drug interaction [Recovered/Resolved]
